FAERS Safety Report 6419443-X (Version None)
Quarter: 2009Q4

REPORT INFORMATION
  Report Type: 
  Country: None (occurrence: None)
  Receive Date: 20091027
  Receipt Date: 20091014
  Transmission Date: 20100525
  Serious: Yes (Other)
  Sender: FDA-Public Use
  Company Number: AXC-2009-000049

PATIENT
  Age: 9 Year
  Sex: Male

DRUGS (3)
  1. MESALAMINE [Suspect]
     Indication: INFLAMMATORY BOWEL DISEASE
     Dosage: 30 MG/KG, TID, ORAL
     Route: 048
  2. MESALAMINE [Suspect]
     Dosage: 250 MG, QD, RECTAL
     Route: 054
  3. METRONIDAZOLE [Concomitant]

REACTIONS (5)
  - CONDITION AGGRAVATED [None]
  - EOSINOPHILIA [None]
  - INFECTION PARASITIC [None]
  - INFLAMMATORY BOWEL DISEASE [None]
  - WHITE BLOOD CELL COUNT INCREASED [None]
